FAERS Safety Report 9753908 (Version 1)
Quarter: 2013Q4

REPORT INFORMATION
  Report Type: Spontaneous
  Country: US (occurrence: US)
  Receive Date: 20131213
  Receipt Date: 20131213
  Transmission Date: 20140711
  Serious: Yes (Other)
  Sender: FDA-Public Use
  Company Number: US-BAYER-2013-150389

PATIENT
  Sex: Female

DRUGS (2)
  1. ESSURE [Suspect]
  2. MIRENA [Suspect]
     Indication: GENITAL HAEMORRHAGE
     Dosage: 20 MCG/24HR, CONT
     Route: 015
     Dates: start: 2012, end: 20131204

REACTIONS (3)
  - Genital haemorrhage [Not Recovered/Not Resolved]
  - Device expulsion [Unknown]
  - Drug ineffective [Not Recovered/Not Resolved]
